FAERS Safety Report 6035710-6 (Version None)
Quarter: 2009Q1

REPORT INFORMATION
  Report Type: 
  Country: None (occurrence: None)
  Receive Date: 20090112
  Receipt Date: 20090112
  Transmission Date: 20090719
  Serious: Yes (Other)
  Sender: FDA-Public Use
  Company Number: None

PATIENT
  Age: 48 Year
  Sex: Male
  Weight: 62.5964 kg

DRUGS (5)
  1. ERBITUX [Suspect]
     Indication: PANCREATIC CARCINOMA
     Dosage: -1- 400MG/M2, -6- 250MG/M2 WEEKLY IV DRIP
     Route: 041
     Dates: start: 20071024, end: 20071204
  2. GEMCITABINE [Suspect]
     Indication: PANCREATIC CARCINOMA
     Dosage: 50MG/M2 TWICE WEEKLY IV DRIP
     Route: 041
     Dates: start: 20071030, end: 20071207
  3. CREON [Concomitant]
  4. AQUADEKS [Concomitant]
  5. ZINC [Concomitant]

REACTIONS (3)
  - BACK PAIN [None]
  - FLANK PAIN [None]
  - RECTAL HAEMORRHAGE [None]
